FAERS Safety Report 6566100-5 (Version None)
Quarter: 2010Q1

REPORT INFORMATION
  Report Type: 
  Country: None (occurrence: None)
  Receive Date: 20100202
  Receipt Date: 20100127
  Transmission Date: 20100710
  Serious: Yes (Other)
  Sender: FDA-Public Use
  Company Number: US-RB-001849-10

PATIENT
  Age: 90 Year
  Sex: Female

DRUGS (1)
  1. MUCINEX [Suspect]
     Indication: UPPER RESPIRATORY TRACT CONGESTION
     Route: 048
     Dates: start: 20100126

REACTIONS (6)
  - BLOOD PRESSURE INCREASED [None]
  - HEADACHE [None]
  - PALPITATIONS [None]
  - SALIVARY HYPERSECRETION [None]
  - VISION BLURRED [None]
  - VOMITING [None]
